FAERS Safety Report 19767849 (Version 1)
Quarter: 2021Q3

REPORT INFORMATION
  Report Type: Report from Study
  Country: US (occurrence: US)
  Receive Date: 20210830
  Receipt Date: 20210830
  Transmission Date: 20211014
  Serious: No
  Sender: FDA-Public Use
  Company Number: US-KYOWAKIRIN-2021BKK014473

PATIENT

DRUGS (2)
  1. CRYSVITA [Suspect]
     Active Substance: BUROSUMAB-TWZA
     Indication: PHOSPHORUS METABOLISM DISORDER
     Dosage: 70 MG  (DOSE ACHIVED BY COMBINATION OF STRENGTHS: 10 AND 30 MG/ML), EVERY 14 DAYS
     Route: 058
     Dates: start: 20200228
  2. CRYSVITA [Suspect]
     Active Substance: BUROSUMAB-TWZA
     Indication: PHOSPHORUS METABOLISM DISORDER
     Dosage: 70 MG (DOSE ACHIEVED BY COMBINATION OF STRENGTHS: 10 AND 30 MG/ML), EVERY 14 DAYS
     Route: 058
     Dates: start: 20200228

REACTIONS (1)
  - Toothache [Unknown]
